FAERS Safety Report 15400948 (Version 3)
Quarter: 2020Q3

REPORT INFORMATION
  Report Type: Spontaneous
  Country: US (occurrence: US)
  Receive Date: 20180919
  Receipt Date: 20200720
  Transmission Date: 20201102
  Serious: Yes (Hospitalization)
  Sender: FDA-Public Use
  Company Number: US-JNJFOC-20180908126

PATIENT
  Age: 76 Year
  Sex: Male
  Weight: 95.34 kg

DRUGS (11)
  1. TRIAMTERENE. [Concomitant]
     Active Substance: TRIAMTERENE
     Dosage: 37.5 ? 25 MG
     Route: 048
  2. TREMFYA [Suspect]
     Active Substance: GUSELKUMAB
     Indication: PSORIASIS
     Dosage: MOST RECENT DOSE ADMINISTERED ON 13?SEP?2018
     Route: 058
     Dates: start: 20170815
  3. ULORIC [Concomitant]
     Active Substance: FEBUXOSTAT
     Route: 048
  4. ENSTILAR [Concomitant]
     Active Substance: BETAMETHASONE DIPROPIONATE\CALCIPOTRIENE HYDRATE
     Route: 061
  5. ALLOPURINOL. [Concomitant]
     Active Substance: ALLOPURINOL
     Route: 048
  6. AMLODIPINE [Concomitant]
     Active Substance: AMLODIPINE BESYLATE
     Route: 048
  7. LEXAPRO [Concomitant]
     Active Substance: ESCITALOPRAM OXALATE
     Route: 048
  8. METOPROLOL. [Concomitant]
     Active Substance: METOPROLOL
     Route: 048
  9. ASPRIN [Concomitant]
     Active Substance: ASPIRIN
     Route: 048
  10. CANDESARTAN. [Concomitant]
     Active Substance: CANDESARTAN
     Route: 048
  11. SYNTHROID [Concomitant]
     Active Substance: LEVOTHYROXINE SODIUM
     Route: 048

REACTIONS (1)
  - Pericardial effusion [Recovered/Resolved]

NARRATIVE: CASE EVENT DATE: 20180715
